FAERS Safety Report 10555506 (Version 1)
Quarter: 2014Q4

REPORT INFORMATION
  Report Type: Spontaneous
  Country: BR (occurrence: BR)
  Receive Date: 20141030
  Receipt Date: 20141030
  Transmission Date: 20150529
  Serious: Yes (Hospitalization, Other)
  Sender: FDA-Public Use
  Company Number: BR-BAXTER-2014BAX063573

PATIENT
  Age: 14 Year
  Sex: Male
  Weight: 54 kg

DRUGS (3)
  1. FEIBA [Suspect]
     Active Substance: ANTI-INHIBITOR COAGULANT COMPLEX
     Indication: PROPHYLAXIS
     Dosage: 2000 IU/MG
     Route: 065
     Dates: end: 20141008
  2. FEIBA [Suspect]
     Active Substance: ANTI-INHIBITOR COAGULANT COMPLEX
     Dosage: 5000 IU/MG
     Route: 065
     Dates: start: 20141008, end: 20141018
  3. FEIBA [Suspect]
     Active Substance: ANTI-INHIBITOR COAGULANT COMPLEX
     Dosage: 2000 IU/MG
     Route: 065
     Dates: start: 20141018

REACTIONS (2)
  - Intestinal haemorrhage [Recovered/Resolved]
  - Gastritis bacterial [Unknown]

NARRATIVE: CASE EVENT DATE: 20141008
